FAERS Safety Report 4456654-7 (Version None)
Quarter: 2004Q3

REPORT INFORMATION
  Report Type: 
  Country: None (occurrence: None)
  Receive Date: 20040921
  Receipt Date: 20040907
  Transmission Date: 20050211
  Serious: Yes (Death, Hospitalization)
  Sender: FDA-Public Use
  Company Number: PL-2004-032102

PATIENT
  Age: 69 Year
  Sex: Male

DRUGS (10)
  1. MABCAMPATH (ALEMTUZUMAB) AMPULE [Suspect]
     Indication: CHRONIC LYMPHOCYTIC LEUKAEMIA
     Dosage: 30 MG, 3 X PER WEEK, INTRAVENOUS
     Route: 042
     Dates: start: 20040405, end: 20040723
  2. HEVIRAN (ACICLOVIR SODIUM) [Concomitant]
  3. CO-TRIMOXAZOLE (CO-TRIMOXAZOLE) [Concomitant]
  4. RANIGAST (RANITIDINE HYDROCHLORIDE) [Concomitant]
  5. ESTAZOLAM [Concomitant]
  6. INDAPAMIDE [Concomitant]
  7. METHIMAZOLE [Concomitant]
  8. ENARENAL (ENALAPRIL MALEATE) [Concomitant]
  9. FLUCONAZOLE [Concomitant]
  10. MILURIT [Concomitant]

REACTIONS (4)
  - CHOLELITHIASIS [None]
  - HEPATIC FAILURE [None]
  - HEPATITIS [None]
  - RENAL CYST [None]
